FAERS Safety Report 10267311 (Version 2)
Quarter: 2014Q3

REPORT INFORMATION
  Report Type: Spontaneous
  Country: DE (occurrence: DE)
  Receive Date: 20140630
  Receipt Date: 20140722
  Transmission Date: 20150326
  Serious: Yes (Hospitalization)
  Sender: FDA-Public Use
  Company Number: PHHY2014DE079200

PATIENT
  Age: 65 Year
  Sex: Male
  Weight: 64 kg

DRUGS (2)
  1. GLIVEC [Suspect]
     Active Substance: IMATINIB MESYLATE
     Indication: LEIOMYOSARCOMA
     Dosage: 400 MG, DAILY
     Route: 048
     Dates: start: 2010
  2. GLIVEC [Suspect]
     Active Substance: IMATINIB MESYLATE
     Indication: OFF LABEL USE

REACTIONS (5)
  - Second primary malignancy [Recovering/Resolving]
  - Haematuria [Recovered/Resolved]
  - Transitional cell carcinoma [Recovering/Resolving]
  - Urinary bladder haemorrhage [Unknown]
  - Cystitis [Unknown]

NARRATIVE: CASE EVENT DATE: 20120711
